FAERS Safety Report 10661535 (Version 1)
Quarter: 2014Q4

REPORT INFORMATION
  Report Type: Report from Study
  Country: NL (occurrence: NL)
  Receive Date: 20141218
  Receipt Date: 20141218
  Transmission Date: 20150529
  Serious: Yes (Hospitalization)
  Sender: FDA-Public Use
  Company Number: PHHY2014NL160555

PATIENT
  Age: 86 Year
  Sex: Male

DRUGS (1)
  1. SANDOSTATINE LAR [Suspect]
     Active Substance: OCTREOTIDE ACETATE
     Indication: NEUROENDOCRINE TUMOUR
     Dosage: 30 MG/ 2ML, ONCE EVERY 4 WEEKS
     Route: 030

REACTIONS (5)
  - Cognitive disorder [Unknown]
  - Abdominal discomfort [Unknown]
  - Abdominal pain [Unknown]
  - General physical health deterioration [Unknown]
  - Malaise [Unknown]

NARRATIVE: CASE EVENT DATE: 20141124
